FAERS Safety Report 25928851 (Version 1)
Quarter: 2025Q4

REPORT INFORMATION
  Report Type: Report from Study
  Country: US (occurrence: None)
  Receive Date: 20251016
  Receipt Date: 20251016
  Transmission Date: 20260118
  Serious: Yes (Hospitalization, Other)
  Sender: UCB
  Company Number: US-UCBSA-2025064063

PATIENT
  Age: 77 Year

DRUGS (3)
  1. LACOSAMIDE [Suspect]
     Active Substance: LACOSAMIDE
     Indication: Seizure
     Dosage: 150MG AM AND 200MG PM
  2. LACOSAMIDE [Suspect]
     Active Substance: LACOSAMIDE
     Indication: Epilepsy
     Dosage: 150 MILLIGRAM, 2X/DAY (BID)
  3. LACOSAMIDE [Suspect]
     Active Substance: LACOSAMIDE
     Dosage: 200 MILLIGRAM, 2X/DAY (BID)

REACTIONS (4)
  - Seizure [Unknown]
  - Petit mal epilepsy [Unknown]
  - Headache [Unknown]
  - Product use issue [Unknown]
